FAERS Safety Report 5425850-4 (Version None)
Quarter: 2007Q3

REPORT INFORMATION
  Report Type: 
  Country: None (occurrence: None)
  Receive Date: 20070827
  Receipt Date: 20070815
  Transmission Date: 20080115
  Serious: Yes (Other)
  Sender: FDA-Public Use
  Company Number: HQWYE628817AUG07

PATIENT
  Sex: Female

DRUGS (5)
  1. EFFEXOR XR [Suspect]
     Indication: ANXIETY
     Route: 048
     Dates: start: 20070602, end: 20070608
  2. EFFEXOR XR [Suspect]
     Indication: DEPRESSION
     Route: 048
     Dates: start: 20070609, end: 20070716
  3. EFFEXOR XR [Suspect]
     Route: 048
     Dates: start: 20070730
  4. ZYPREXA [Concomitant]
     Route: 048
     Dates: start: 20070401
  5. LAMICTAL [Concomitant]
     Route: 048
     Dates: start: 20000101

REACTIONS (4)
  - DECREASED APPETITE [None]
  - DRUG WITHDRAWAL SYNDROME [None]
  - INTENTIONAL DRUG MISUSE [None]
  - SELF-INJURIOUS IDEATION [None]
